FAERS Safety Report 9161353 (Version 1)
Quarter: 2013Q1

REPORT INFORMATION
  Report Type: Spontaneous
  Country: US (occurrence: US)
  Receive Date: 20130313
  Receipt Date: 20130313
  Transmission Date: 20140127
  Serious: No
  Sender: FDA-Public Use
  Company Number: US-009507513-1303USA006152

PATIENT
  Age: 4 Year
  Sex: Female

DRUGS (3)
  1. CLARITIN ORAL SOLUTION [Suspect]
     Indication: HYPERSENSITIVITY
     Dosage: 5 MG, QD
     Route: 048
     Dates: start: 20130305
  2. CLARITIN ORAL SOLUTION [Suspect]
     Dosage: 5 MG, ONCE
     Route: 048
     Dates: start: 20130306
  3. CLARITIN ORAL SOLUTION [Suspect]
     Dosage: 5 MG, ONCE
     Route: 048
     Dates: start: 20130306

REACTIONS (1)
  - Overdose [Unknown]
